FAERS Safety Report 18449425 (Version 1)
Quarter: 2020Q4

REPORT INFORMATION
  Report Type: Spontaneous
  Country: US (occurrence: US)
  Receive Date: 20201102
  Receipt Date: 20201102
  Transmission Date: 20210114
  Serious: Yes (Other)
  Sender: FDA-Public Use
  Company Number: US-SA-2020SA305942

PATIENT

DRUGS (2)
  1. ALPROLIX [Suspect]
     Active Substance: EFTRENONACOG ALFA
     Dosage: UNK, QW,50 (IE S PER KG)
     Route: 065
     Dates: start: 2016
  2. ALPROLIX [Suspect]
     Active Substance: EFTRENONACOG ALFA
     Dosage: UNK, QW,50 (IE S PER KG)
     Route: 065
     Dates: start: 2016

REACTIONS (1)
  - Hepatic failure [Unknown]
